FAERS Safety Report 9531476 (Version 1)
Quarter: 2013Q3

REPORT INFORMATION
  Report Type: Spontaneous
  Country: US (occurrence: None)
  Receive Date: 20130916
  Receipt Date: 20130916
  Transmission Date: 20140515
  Serious: Yes (Other)
  Sender: FDA-Public Use
  Company Number: None

PATIENT
  Age: 57 Year
  Sex: Female
  Weight: 61.24 kg

DRUGS (1)
  1. CENTRUM [Suspect]
     Indication: VITAMIN SUPPLEMENTATION
     Dosage: TWO, ONCE DAILY TAKEN BY MOUTH
     Route: 048
     Dates: start: 20121007, end: 20130105

REACTIONS (2)
  - Dermatitis allergic [None]
  - Urticaria [None]
